FAERS Safety Report 9265820 (Version 4)
Quarter: 2013Q3

REPORT INFORMATION
  Report Type: Spontaneous
  Country: DE (occurrence: DE)
  Receive Date: 20130501
  Receipt Date: 20130719
  Transmission Date: 20140515
  Serious: Yes (Hospitalization, Other)
  Sender: FDA-Public Use
  Company Number: DE-VERTEX PHARMACEUTICALS INC-2013-005620

PATIENT
  Age: 59 Year
  Sex: Male

DRUGS (3)
  1. INCIVO [Suspect]
     Indication: CHRONIC HEPATITIS C
     Dosage: 750 MG, TABLET
     Route: 048
     Dates: start: 20120625, end: 20120911
  2. PEGINTERFERON ALFA 2A [Suspect]
     Indication: CHRONIC HEPATITIS C
     Dosage: DOSAGE FORM: SOLUTION FOR INJECTION
     Route: 058
     Dates: start: 20120625
  3. COPEGUS [Suspect]
     Indication: CHRONIC HEPATITIS C
     Dosage: DOSAGE FORM: TABLET
     Route: 048
     Dates: start: 20120625, end: 20130115

REACTIONS (1)
  - Hepatic cancer [Recovered/Resolved]
